FAERS Safety Report 10160466 (Version 2)
Quarter: 2014Q2

REPORT INFORMATION
  Report Type: Spontaneous
  Country: US (occurrence: US)
  Receive Date: 20140508
  Receipt Date: 20140508
  Transmission Date: 20141212
  Serious: Yes (Other)
  Sender: FDA-Public Use
  Company Number: US-PFIZER INC-2014112383

PATIENT
  Age: 59 Year
  Sex: Male
  Weight: 76.19 kg

DRUGS (12)
  1. PROTONIX [Suspect]
     Dosage: 40 MG, 1X/DAY
     Route: 048
     Dates: start: 2013
  2. VYTORIN [Concomitant]
     Indication: BLOOD CHOLESTEROL INCREASED
     Dosage: 1 DF, 1X/DAY
     Route: 048
  3. ZONISAMIDE [Concomitant]
     Indication: CONVULSION
     Dosage: 100 MG, 4X/DAY
  4. LEVETIRACETAM [Concomitant]
     Indication: CONVULSION
     Dosage: 1500MG IN THE MORNING AND 1525MG AT NIGHT
  5. TIZANIDINE [Concomitant]
     Dosage: 4 MG, (1 PILL) AS NEEDED
     Route: 048
  6. METFORMIN [Concomitant]
     Indication: DIABETES MELLITUS
     Dosage: 500 MG, (1 PILL 1X/DAY)
     Route: 048
  7. ARMOUR THYROID [Concomitant]
     Dosage: UNK 1 PILL, 1X/DAY
     Route: 048
  8. MELOXICAM [Concomitant]
     Dosage: 15 MG, 1 PILL 1X/DAY
     Route: 048
  9. ZOLPIDEM [Concomitant]
     Indication: SLEEP DISORDER
     Dosage: UNK, AS NEEDED
  10. FIBERCON [Concomitant]
     Indication: GASTROOESOPHAGEAL REFLUX DISEASE
     Dosage: 150 MG, (1 PILL), UNK
     Route: 048
  11. ASPIRIN [Concomitant]
     Dosage: 81 MG, 1 PILL, UNK
     Route: 048
  12. PROTONIX [Concomitant]
     Dosage: UNK, 1 PILL 1X/DAY
     Route: 048

REACTIONS (3)
  - Cardiac disorder [Unknown]
  - Hiatus hernia [Unknown]
  - Off label use [Unknown]
